FAERS Safety Report 7342589-9 (Version None)
Quarter: 2011Q1

REPORT INFORMATION
  Report Type: 
  Country: None (occurrence: None)
  Receive Date: 20110310
  Receipt Date: 20110214
  Transmission Date: 20110831
  Serious: Yes (Hospitalization, Other)
  Sender: FDA-Public Use
  Company Number: US-BAYER-201022568NA

PATIENT
  Sex: Female
  Weight: 144.22 kg

DRUGS (14)
  1. YASMIN [Suspect]
     Indication: UNEVALUABLE EVENT
     Dosage: UNK
     Dates: start: 20001001, end: 20060901
  2. GLUCOPHAGE [Concomitant]
     Dosage: 500 MG, UNK
     Route: 048
     Dates: start: 20020221
  3. UNCODEABLE ^UNCLASSIFIABLE^ [Concomitant]
     Dosage: 100 MG, UNK
     Route: 048
     Dates: start: 20030423
  4. ZANTAC [Concomitant]
     Dosage: 150 MG, UNK
     Route: 048
     Dates: start: 20060705
  5. NSAID'S [Concomitant]
     Dosage: UNK UNK, PRN
  6. GLUCOPHAGE [Concomitant]
     Indication: POLYCYSTIC OVARIES
     Dosage: 1000 MG, UNK
     Dates: start: 20000101
  7. LEXAPRO [Concomitant]
     Dosage: 20 MG, UNK
     Route: 048
  8. ASPIRIN [Concomitant]
     Dosage: 81 MG, UNK
     Route: 048
     Dates: start: 20051010
  9. UNCODEABLE ^UNCLASSIFIABLE^ [Concomitant]
     Indication: MIGRAINE
     Dosage: UNK UNK, PRN
  10. EFFEXOR [Concomitant]
     Indication: ANXIETY
     Dosage: UNK
     Dates: start: 20060101
  11. METFORMIN [Concomitant]
     Route: 048
  12. ANTIBIOTICS [Concomitant]
     Dosage: UNK UNK, PRN
  13. DONNATAL [Concomitant]
     Dosage: 16.2 MG, UNK
     Route: 048
     Dates: start: 20060705
  14. NEXIUM [Concomitant]
     Dosage: 40 MG, UNK
     Dates: start: 20060101, end: 20090101

REACTIONS (23)
  - WEIGHT FLUCTUATION [None]
  - CAESAREAN SECTION [None]
  - ARTHRALGIA [None]
  - PALPITATIONS [None]
  - ABDOMINAL PAIN [None]
  - ECTOPIC PREGNANCY [None]
  - ABORTION SPONTANEOUS [None]
  - GESTATIONAL DIABETES [None]
  - DRUG EXPOSURE DURING PREGNANCY [None]
  - DRUG EXPOSURE BEFORE PREGNANCY [None]
  - POLYCYSTIC OVARIES [None]
  - MIGRAINE [None]
  - UTERINE POLYP [None]
  - ANGINA PECTORIS [None]
  - ANTIPHOSPHOLIPID SYNDROME [None]
  - ROAD TRAFFIC ACCIDENT [None]
  - PREGNANCY [None]
  - VARICOSE VEIN [None]
  - GALLBLADDER DISORDER [None]
  - HYPERTENSION [None]
  - PREGNANCY ON ORAL CONTRACEPTIVE [None]
  - CHOLELITHIASIS [None]
  - OLIGOHYDRAMNIOS [None]
